FAERS Safety Report 9770410 (Version 2)
Quarter: 2014Q1

REPORT INFORMATION
  Report Type: Spontaneous
  Country: US (occurrence: US)
  Receive Date: 20131218
  Receipt Date: 20140123
  Transmission Date: 20141002
  Serious: No
  Sender: FDA-Public Use
  Company Number: US-TEVA-448469USA

PATIENT
  Age: 28 Year
  Sex: Female
  Weight: 47.67 kg

DRUGS (2)
  1. PARAGARD 380A [Suspect]
     Indication: CONTRACEPTION
     Route: 015
     Dates: start: 20130830, end: 20131031
  2. PARAGARD 380A [Suspect]
     Route: 015
     Dates: start: 20131210, end: 20131210

REACTIONS (2)
  - Device expulsion [Recovered/Resolved]
  - Vaginal discharge [Recovered/Resolved]
